FAERS Safety Report 4752487-2 (Version None)
Quarter: 2005Q3

REPORT INFORMATION
  Report Type: 
  Country: None (occurrence: None)
  Receive Date: 20050825
  Receipt Date: 20050816
  Transmission Date: 20060218
  Serious: Yes (Hospitalization)
  Sender: FDA-Public Use
  Company Number: US-ROCHE-414717

PATIENT
  Age: 50 Year
  Sex: Male

DRUGS (2)
  1. PEGASYS [Suspect]
     Dosage: ROUTE REPORTED AS INJECTION.
     Route: 050
     Dates: start: 20050415
  2. COPEGUS [Suspect]
     Route: 048
     Dates: start: 20050415

REACTIONS (4)
  - ANAEMIA [None]
  - DEHYDRATION [None]
  - HEADACHE [None]
  - TOOTH INFECTION [None]
